FAERS Safety Report 9200761 (Version 1)
Quarter: 2013Q1

REPORT INFORMATION
  Report Type: Spontaneous
  Country: US (occurrence: None)
  Receive Date: 20130328
  Receipt Date: 20130328
  Transmission Date: 20140127
  Serious: No
  Sender: FDA-Public Use
  Company Number: None

PATIENT
  Age: 52 Year
  Sex: Male

DRUGS (1)
  1. HALOPERIDOL DECANOATE 50MG/ML [Suspect]
     Route: 030

REACTIONS (1)
  - Rabbit syndrome [None]
